FAERS Safety Report 6920943-4 (Version None)
Quarter: 2010Q3

REPORT INFORMATION
  Report Type: 
  Country: None (occurrence: None)
  Receive Date: 20100812
  Receipt Date: 20100802
  Transmission Date: 20110219
  Serious: Yes (Death, Life-Threatening)
  Sender: FDA-Public Use
  Company Number: BE-PFIZER INC-2008045695

PATIENT
  Age: 49 Year
  Sex: Female
  Weight: 65 kg

DRUGS (6)
  1. EXEMESTANE [Suspect]
     Indication: BREAST CANCER
     Dosage: 25 MG, 1X/DAY
     Route: 048
     Dates: start: 20060720, end: 20080519
  2. TRIPTORELIN [Suspect]
     Indication: BREAST CANCER
     Dosage: Q4W
     Route: 030
     Dates: start: 20060719, end: 20080519
  3. CITALOPRAM HYDROBROMIDE [Concomitant]
     Indication: ANTIDEPRESSANT THERAPY
     Dates: start: 20080101, end: 20080519
  4. REMERGON [Concomitant]
     Indication: ANTIDEPRESSANT THERAPY
     Dates: start: 20080101, end: 20080501
  5. TRAZODONE [Concomitant]
     Indication: ANTIDEPRESSANT THERAPY
  6. RANITIDINE [Concomitant]
     Dates: start: 20080101, end: 20080101

REACTIONS (1)
  - HEPATIC FAILURE [None]
